FAERS Safety Report 24898394 (Version 1)
Quarter: 2025Q1

REPORT INFORMATION
  Report Type: Spontaneous
  Country: CA (occurrence: CA)
  Receive Date: 20250129
  Receipt Date: 20250129
  Transmission Date: 20250409
  Serious: Yes (Life-Threatening)
  Sender: CSL BEHRING
  Company Number: CA-BEH-2025193088

PATIENT
  Age: 35 Year
  Sex: Female

DRUGS (4)
  1. HUMAN IMMUNOGLOBULIN G [Suspect]
     Active Substance: HUMAN IMMUNOGLOBULIN G
     Indication: Product used for unknown indication
     Route: 065
  2. LOVENOX [Concomitant]
     Active Substance: ENOXAPARIN SODIUM
  3. NIDAGEL [Concomitant]
  4. TYLENOL [Concomitant]
     Active Substance: ACETAMINOPHEN

REACTIONS (6)
  - Meningitis aseptic [Unknown]
  - Musculoskeletal stiffness [Unknown]
  - Psychomotor hyperactivity [Unknown]
  - Pyrexia [Unknown]
  - Tachycardia [Unknown]
  - Vomiting [Unknown]
